FAERS Safety Report 22161590 (Version 1)
Quarter: 2023Q1

REPORT INFORMATION
  Report Type: Spontaneous
  Country: US (occurrence: US)
  Receive Date: 20230331
  Receipt Date: 20230331
  Transmission Date: 20230418
  Serious: No
  Sender: FDA-Public Use
  Company Number: US-IBSA PHARMA INC.-2022-IBS-01853

PATIENT

DRUGS (1)
  1. FLECTOR [Suspect]
     Active Substance: DICLOFENAC EPOLAMINE
     Indication: Product used for unknown indication

REACTIONS (5)
  - Gait disturbance [Unknown]
  - Insomnia [Unknown]
  - Joint injury [Unknown]
  - Spinal column injury [Unknown]
  - Therapeutic product effect incomplete [Unknown]
